FAERS Safety Report 14589321 (Version 2)
Quarter: 2018Q2

REPORT INFORMATION
  Report Type: Report from Study
  Country: ES (occurrence: ES)
  Receive Date: 20180302
  Receipt Date: 20180501
  Transmission Date: 20180711
  Serious: Yes (Hospitalization, Other)
  Sender: FDA-Public Use
  Company Number: ES-BEH-2018088351

PATIENT
  Age: 37 Year
  Sex: Female

DRUGS (16)
  1. BERINERT [Suspect]
     Active Substance: HUMAN C1-ESTERASE INHIBITOR
     Dosage: UNK, SINGLE, 1000 U
     Route: 042
     Dates: start: 20150303, end: 20150303
  2. BERINERT [Suspect]
     Active Substance: HUMAN C1-ESTERASE INHIBITOR
     Indication: PROPHYLAXIS
     Dosage: UNK, SINGLE, 1000U
     Route: 042
     Dates: start: 20150222, end: 20150222
  3. BERINERT [Suspect]
     Active Substance: HUMAN C1-ESTERASE INHIBITOR
     Dosage: UNK, SINGLE, 1000U
     Route: 042
     Dates: start: 20150508, end: 20150508
  4. BERINERT [Suspect]
     Active Substance: HUMAN C1-ESTERASE INHIBITOR
     Dosage: UNK, SINGLE, 1000U
     Route: 042
     Dates: start: 20150705, end: 20150705
  5. BERINERT [Suspect]
     Active Substance: HUMAN C1-ESTERASE INHIBITOR
     Dosage: UNK, SINGLE, 1000U
     Route: 042
     Dates: start: 20150605, end: 20150605
  6. BERINERT [Suspect]
     Active Substance: HUMAN C1-ESTERASE INHIBITOR
     Dosage: UNK, SINGLE, 1000U
     Route: 042
     Dates: start: 20150325, end: 20150325
  7. BERINERT [Suspect]
     Active Substance: HUMAN C1-ESTERASE INHIBITOR
     Dosage: UNK, SINGLE, 1000U
     Route: 042
     Dates: start: 20150705, end: 20150705
  8. BERINERT [Suspect]
     Active Substance: HUMAN C1-ESTERASE INHIBITOR
     Indication: HEREDITARY ANGIOEDEMA
     Dosage: UNK, SINGLE, 1000U
     Route: 042
     Dates: start: 20150214, end: 20150214
  9. BERINERT [Suspect]
     Active Substance: HUMAN C1-ESTERASE INHIBITOR
     Dosage: UNK, SINGLE, 1000U
     Route: 042
     Dates: start: 20150310, end: 20150310
  10. BERINERT [Suspect]
     Active Substance: HUMAN C1-ESTERASE INHIBITOR
     Dosage: UNK, SINGLE, 1000U
     Route: 042
     Dates: start: 20150508, end: 20150508
  11. BERINERT [Suspect]
     Active Substance: HUMAN C1-ESTERASE INHIBITOR
     Dosage: UNK, SINGLE, 1000 U
     Route: 042
     Dates: start: 20150612, end: 20150612
  12. BERINERT [Suspect]
     Active Substance: HUMAN C1-ESTERASE INHIBITOR
     Dosage: UNK, SINGLE, 1000U
     Route: 042
     Dates: start: 20150616, end: 20150616
  13. BERINERT [Suspect]
     Active Substance: HUMAN C1-ESTERASE INHIBITOR
     Dosage: UNK, SINGLE, 1000U
     Route: 042
     Dates: start: 20150724, end: 20150724
  14. BERINERT [Suspect]
     Active Substance: HUMAN C1-ESTERASE INHIBITOR
     Dosage: UNK, SINGLE, 1000U
     Route: 042
     Dates: start: 20150316, end: 20150316
  15. BERINERT [Suspect]
     Active Substance: HUMAN C1-ESTERASE INHIBITOR
     Dosage: UNK, SINGLE, 1000U
     Route: 042
     Dates: start: 20150316, end: 20150316
  16. BERINERT [Suspect]
     Active Substance: HUMAN C1-ESTERASE INHIBITOR
     Dosage: UNK, SINGLE, 1000U
     Route: 042
     Dates: start: 20150515, end: 20150515

REACTIONS (1)
  - Abortion spontaneous [Recovered/Resolved]

NARRATIVE: CASE EVENT DATE: 20150723
